FAERS Safety Report 11010000 (Version 1)
Quarter: 2015Q2

REPORT INFORMATION
  Report Type: Report from Study
  Country: US (occurrence: US)
  Receive Date: 20150410
  Receipt Date: 20150410
  Transmission Date: 20150821
  Serious: Yes (Death)
  Sender: FDA-Public Use
  Company Number: US-ASTELLAS-2015US008888

PATIENT
  Sex: Male

DRUGS (2)
  1. ERLOTINIB [Suspect]
     Active Substance: ERLOTINIB
     Indication: OESOPHAGEAL CARCINOMA
     Route: 065
     Dates: start: 20111222
  2. ERLOTINIB [Suspect]
     Active Substance: ERLOTINIB
     Indication: GASTRIC CANCER

REACTIONS (1)
  - Death [Fatal]
